FAERS Safety Report 11351905 (Version 1)
Quarter: 2015Q3

REPORT INFORMATION
  Report Type: Spontaneous
  Country: US (occurrence: US)
  Receive Date: 20150807
  Receipt Date: 20150807
  Transmission Date: 20151125
  Serious: No
  Sender: FDA-Public Use
  Company Number: US-JNJFOC-20150203871

PATIENT
  Age: 67 Year
  Sex: Female
  Weight: 49.9 kg

DRUGS (4)
  1. LOTRONEX [Concomitant]
     Active Substance: ALOSETRON HYDROCHLORIDE
     Indication: DIARRHOEA
     Dosage: AS NEEDED
     Route: 065
  2. PEPCID COMPLETE [Suspect]
     Active Substance: CALCIUM CARBONATE\FAMOTIDINE\MAGNESIUM HYDROXIDE
     Route: 048
  3. PEPCID COMPLETE [Suspect]
     Active Substance: CALCIUM CARBONATE\FAMOTIDINE\MAGNESIUM HYDROXIDE
     Indication: IRRITABLE BOWEL SYNDROME
     Dosage: 1 TO 2 CHEWABLES, 3 TO 4 TIMES A WEEK
     Route: 048
  4. EQUATE TYLENOL [Concomitant]
     Indication: PAIN
     Route: 065

REACTIONS (3)
  - Dysgeusia [Recovered/Resolved]
  - Product use issue [Unknown]
  - Product physical issue [Unknown]
